FAERS Safety Report 20831551 (Version 1)
Quarter: 2022Q2

REPORT INFORMATION
  Report Type: Spontaneous
  Country: US (occurrence: US)
  Receive Date: 20220516
  Receipt Date: 20220516
  Transmission Date: 20220721
  Serious: Yes (Other)
  Sender: FDA-Public Use
  Company Number: US-BRISTOL-MYERS SQUIBB COMPANY-2022-036170

PATIENT
  Age: 87 Year
  Sex: Female
  Weight: 49.9 kg

DRUGS (1)
  1. ELIQUIS [Suspect]
     Active Substance: APIXABAN
     Indication: Embolism venous
     Dosage: DOSE : UNAVAILABLE;     FREQ : TWICE A DAY
     Route: 065

REACTIONS (1)
  - Haematochezia [Unknown]
